FAERS Safety Report 9233597 (Version 1)
Quarter: 2013Q2

REPORT INFORMATION
  Report Type: Spontaneous
  Country: US (occurrence: US)
  Receive Date: 20130416
  Receipt Date: 20130416
  Transmission Date: 20140414
  Serious: No
  Sender: FDA-Public Use
  Company Number: US-BANPHARM-20120443

PATIENT
  Age: 92 Year
  Sex: Female
  Weight: 75.75 kg

DRUGS (5)
  1. ALEVE LIQUID GELS 220MG [Suspect]
     Dosage: 2 DF, QD,
     Route: 048
     Dates: start: 201212, end: 20121209
  2. METOPROLOL ER SUCCINATE [Concomitant]
  3. WATER PILLS [Concomitant]
  4. SIMVASTATIN [Concomitant]
  5. WALGREENS LOW DOSE ASPIRIN [Concomitant]

REACTIONS (1)
  - Oral discomfort [Recovered/Resolved]
